FAERS Safety Report 5145714-3 (Version None)
Quarter: 2006Q4

REPORT INFORMATION
  Report Type: 
  Country: None (occurrence: None)
  Receive Date: 20060915
  Receipt Date: 20050816
  Transmission Date: 20070319
  Serious: Yes (Other)
  Sender: FDA-Public Use
  Company Number: S05-USA-04015-01

PATIENT
  Age: 59 Year
  Sex: Female

DRUGS (5)
  1. CELEXA [Suspect]
     Indication: DEPRESSION
     Dosage: 20 MG QD PO
     Route: 048
     Dates: start: 20020101, end: 20050101
  2. ACIPHEX [Concomitant]
  3. ELAVIL [Concomitant]
  4. TRAMADOL HCL [Concomitant]
  5. ALLERGY MEDICATIONS (NOS) [Concomitant]

REACTIONS (2)
  - GASTRIC ULCER [None]
  - INSOMNIA [None]
